FAERS Safety Report 21762554 (Version 3)
Quarter: 2023Q1

REPORT INFORMATION
  Report Type: Report from Study
  Country: US (occurrence: US)
  Receive Date: 20221221
  Receipt Date: 20230113
  Transmission Date: 20230418
  Serious: Yes (Hospitalization, Other)
  Sender: FDA-Public Use
  Company Number: US-BAYER-2022P029462

PATIENT
  Age: 61 Year
  Sex: Male

DRUGS (1)
  1. STIVARGA [Suspect]
     Active Substance: REGORAFENIB
     Indication: Colon cancer
     Dosage: 80 MG, QD WITH LOW FAT MEAL WEEK 1
     Route: 048
     Dates: end: 20221212

REACTIONS (10)
  - Gait inability [Not Recovered/Not Resolved]
  - Hospitalisation [Recovered/Resolved]
  - Hypoaesthesia [Not Recovered/Not Resolved]
  - Pain in extremity [Not Recovered/Not Resolved]
  - Off label use [None]
  - Dyspnoea [Not Recovered/Not Resolved]
  - Sciatica [Recovered/Resolved]
  - Dysphonia [Not Recovered/Not Resolved]
  - Diarrhoea [None]
  - Muscular weakness [Not Recovered/Not Resolved]

NARRATIVE: CASE EVENT DATE: 20221210
